FAERS Safety Report 9983202 (Version 1)
Quarter: 2014Q1

REPORT INFORMATION
  Report Type: Report from Study
  Country: US (occurrence: US)
  Receive Date: 20140307
  Receipt Date: 20140307
  Transmission Date: 20141002
  Serious: No
  Sender: FDA-Public Use
  Company Number: US-ABBVIE-13P-163-1178212-00

PATIENT
  Age: 54 Year
  Sex: Female
  Weight: 113.5 kg

DRUGS (16)
  1. HUMIRA [Suspect]
     Indication: PSORIATIC ARTHROPATHY
     Route: 058
     Dates: start: 20131104
  2. AMITRIPTYLINE [Concomitant]
     Indication: MIGRAINE
  3. ETODOLAC [Concomitant]
     Indication: PSORIATIC ARTHROPATHY
  4. ESTRADIOL [Concomitant]
     Indication: HORMONE REPLACEMENT THERAPY
  5. OMEPRAZOLE [Concomitant]
     Indication: GASTROOESOPHAGEAL REFLUX DISEASE
  6. FOLIC ACID [Concomitant]
     Indication: VITAMIN SUPPLEMENTATION
  7. METOPROLOL [Concomitant]
     Indication: HEART RATE INCREASED
  8. CITALOPRAM [Concomitant]
     Indication: DEPRESSION
  9. ATORVASTATIN [Concomitant]
     Indication: BLOOD CHOLESTEROL INCREASED
  10. AMLODIPINE [Concomitant]
     Indication: HYPERTENSION
  11. METHOTREXATE [Concomitant]
     Indication: PSORIATIC ARTHROPATHY
  12. MULTIVITAMIN [Concomitant]
     Indication: VITAMIN SUPPLEMENTATION
  13. FISH OIL [Concomitant]
     Indication: VITAMIN SUPPLEMENTATION
  14. VITAMIN D3 [Concomitant]
     Indication: VITAMIN SUPPLEMENTATION
  15. VITAMIN C [Concomitant]
     Indication: VITAMIN SUPPLEMENTATION
  16. CITRICAL [Concomitant]
     Indication: SUPPLEMENTATION THERAPY

REACTIONS (1)
  - Injection site bruising [Recovered/Resolved]
